FAERS Safety Report 8196859-5 (Version None)
Quarter: 2012Q1

REPORT INFORMATION
  Report Type: 
  Country: None (occurrence: None)
  Receive Date: 20120309
  Receipt Date: 20120229
  Transmission Date: 20120608
  Serious: Yes (Hospitalization)
  Sender: FDA-Public Use
  Company Number: JP-SANOFI-AVENTIS-200912843JP

PATIENT
  Age: 82 Year
  Sex: Male

DRUGS (1)
  1. FUROSEMIDE [Suspect]
     Indication: CARDIAC FAILURE
     Route: 048
     Dates: start: 20081201

REACTIONS (4)
  - LICHENOID KERATOSIS [None]
  - RASH ERYTHEMATOUS [None]
  - DERMATITIS EXFOLIATIVE [None]
  - RASH PAPULAR [None]
